FAERS Safety Report 5067917-9 (Version None)
Quarter: 2006Q3

REPORT INFORMATION
  Report Type: 
  Country: None (occurrence: None)
  Receive Date: 20060802
  Receipt Date: 20060717
  Transmission Date: 20061208
  Serious: Yes (Hospitalization)
  Sender: FDA-Public Use
  Company Number: PHBS2006ES10700

PATIENT
  Sex: Male

DRUGS (2)
  1. LESCOL [Suspect]
     Dosage: UNK, QD
     Route: 048
     Dates: start: 20060623, end: 20060705
  2. AMERIDE [Concomitant]
     Dosage: 5 MG/DAY
     Dates: start: 20060623, end: 20060705

REACTIONS (1)
  - HYPONATRAEMIA [None]
